FAERS Safety Report 4655196-3 (Version None)
Quarter: 2005Q2

REPORT INFORMATION
  Report Type: 
  Country: None (occurrence: None)
  Receive Date: 20050506
  Receipt Date: 20050505
  Transmission Date: 20051028
  Serious: Yes (Hospitalization)
  Sender: FDA-Public Use
  Company Number: US-GLAXOSMITHKLINE-A0557296A

PATIENT
  Sex: Male

DRUGS (3)
  1. DIGOXIN [Suspect]
     Indication: DRUG USE FOR UNKNOWN INDICATION
  2. DIGIBIND [Suspect]
     Dosage: 6160MG AS REQUIRED
     Route: 042
     Dates: start: 20050504
  3. LOPRESSOR [Suspect]
     Indication: DRUG USE FOR UNKNOWN INDICATION

REACTIONS (3)
  - OVERDOSE [None]
  - RENAL FAILURE [None]
  - THERAPEUTIC AGENT TOXICITY [None]
